FAERS Safety Report 19445293 (Version 2)
Quarter: 2021Q4

REPORT INFORMATION
  Report Type: Spontaneous
  Country: JP (occurrence: JP)
  Receive Date: 20210622
  Receipt Date: 20211025
  Transmission Date: 20220303
  Serious: Yes (Other)
  Sender: FDA-Public Use
  Company Number: JP-ONO-2021JP014529

PATIENT
  Age: 69 Year
  Sex: Male
  Weight: 49.3 kg

DRUGS (10)
  1. PARSABIV [Suspect]
     Active Substance: ETELCALCETIDE HYDROCHLORIDE
     Indication: Hyperparathyroidism secondary
     Dosage: 2.5 MILLIGRAM, Q56H
     Route: 010
     Dates: start: 20210324, end: 20210420
  2. PARSABIV [Suspect]
     Active Substance: ETELCALCETIDE HYDROCHLORIDE
     Dosage: 5 MILLIGRAM, Q56H
     Route: 010
     Dates: start: 20210422
  3. IRON SUCROSE [Concomitant]
     Active Substance: IRON SUCROSE
     Dosage: 40 MILLIGRAM, QWK
     Route: 065
     Dates: start: 20191012, end: 20200701
  4. IRON SUCROSE [Concomitant]
     Active Substance: IRON SUCROSE
     Dosage: 40 MILLIGRAM, QWK
     Route: 065
     Dates: start: 20200827, end: 20201219
  5. IRON SUCROSE [Concomitant]
     Active Substance: IRON SUCROSE
     Dosage: 120 MILLIGRAM, QWK
     Route: 065
     Dates: start: 20210107, end: 20210209
  6. IRON SUCROSE [Concomitant]
     Active Substance: IRON SUCROSE
     Dosage: 40 MILLIGRAM, QWK
     Route: 065
     Dates: start: 20210211, end: 20210406
  7. ROXADUSTAT [Concomitant]
     Active Substance: ROXADUSTAT
     Dosage: 300 MILLIGRAM, QWK
     Route: 048
     Dates: start: 20201201, end: 20201222
  8. ROXADUSTAT [Concomitant]
     Active Substance: ROXADUSTAT
     Dosage: 150 MILLIGRAM, QWK
     Route: 048
     Dates: start: 20201224, end: 20210119
  9. ROXADUSTAT [Concomitant]
     Active Substance: ROXADUSTAT
     Dosage: 120 MILLIGRAM, QWK
     Route: 048
     Dates: start: 20210121, end: 20210209
  10. ROXADUSTAT [Concomitant]
     Active Substance: ROXADUSTAT
     Dosage: 60 MILLIGRAM, QWK
     Route: 048
     Dates: start: 20210211

REACTIONS (2)
  - Post procedural cellulitis [Not Recovered/Not Resolved]
  - Shunt stenosis [Recovering/Resolving]

NARRATIVE: CASE EVENT DATE: 20210329
